FAERS Safety Report 15549591 (Version 1)
Quarter: 2018Q4

REPORT INFORMATION
  Report Type: Other
  Country: US (occurrence: US)
  Receive Date: 20181025
  Receipt Date: 20181025
  Transmission Date: 20190205
  Serious: Yes (Other)
  Sender: FDA-Public Use
  Company Number: US-GUARDIAN DRUG COMPANY-2057939

PATIENT
  Age: 16 Year
  Sex: Male

DRUGS (1)
  1. CHILDRENS IBUPROFEN [Suspect]
     Active Substance: IBUPROFEN
     Indication: HUMERUS FRACTURE
     Route: 065

REACTIONS (2)
  - Duodenal ulcer perforation [Recovered/Resolved]
  - Intentional product misuse [Unknown]
